FAERS Safety Report 9625537 (Version 2)
Quarter: 2013Q4

REPORT INFORMATION
  Report Type: Report from Study
  Country: US (occurrence: US)
  Receive Date: 20131016
  Receipt Date: 20131016
  Transmission Date: 20140711
  Serious: Yes (Hospitalization, Other)
  Sender: FDA-Public Use
  Company Number: PHEH2012US026004

PATIENT
  Age: 69 Year
  Sex: Female
  Weight: 64.2 kg

DRUGS (21)
  1. GLEEVEC [Suspect]
     Indication: CHRONIC MYELOID LEUKAEMIA
     Dosage: UNK UKN, UNK
     Route: 048
     Dates: start: 200812
  2. GLEEVEC [Suspect]
     Indication: GASTROINTESTINAL STROMAL TUMOUR
     Dosage: 300 MG, DAILY
     Route: 048
     Dates: start: 20110107
  3. GLEEVEC [Suspect]
     Dosage: 300 MG, DAILY
     Route: 048
     Dates: start: 20120113
  4. GLEEVEC [Suspect]
     Dosage: 350 MG, DAILY
     Route: 048
     Dates: start: 20130821
  5. ANUSOL HC [Concomitant]
     Dosage: UNK UKN, PRN
     Route: 061
  6. CALCIUM + VITAMIN D3 [Concomitant]
     Dosage: 2 DF, BID
  7. ENALAPRIL MALEATE [Concomitant]
     Dosage: 1 DF, BID
     Route: 048
  8. EVISTA [Concomitant]
     Dosage: 1 DF, DAILY
     Route: 048
  9. FERROUS SULFATE [Concomitant]
     Dosage: 1 DF, BID
     Route: 048
  10. PM [Concomitant]
     Dosage: 3.5 DF, 2 DF AM AND 1.5 DF PM
     Route: 048
  11. IMODIUM A-D [Concomitant]
     Dosage: 1 DF, PRN
     Route: 048
  12. LASIX [Concomitant]
     Dosage: 1 DF, UNK
     Route: 048
  13. LIPITOR [Concomitant]
     Dosage: 1 DF, DAILY
     Route: 048
  14. MAGNESIUM OXIDE [Concomitant]
     Dosage: 400 MG, UNK
     Route: 048
  15. METOPROLOL TARTRATE [Concomitant]
     Dosage: 1 DF, BID
     Route: 048
  16. MULTI-VIT [Concomitant]
     Dosage: 1 DF, DAILY
     Route: 048
  17. POTASSIUM CHLORIDE [Concomitant]
  18. PRILOSEC [Concomitant]
     Dosage: 1 DF, BID
     Route: 048
  19. VITAMIN C [Concomitant]
     Dosage: 1 DF, BID
     Route: 048
  20. VITAMIN B12 [Concomitant]
     Route: 030
  21. IRON SUPPLEMENT WITH VIT C + HERBS [Concomitant]
     Indication: ANAEMIA

REACTIONS (19)
  - Abdominal adhesions [Unknown]
  - Small intestinal obstruction [Unknown]
  - Disease recurrence [Unknown]
  - Obstruction gastric [Recovered/Resolved]
  - Abdominal pain [Recovered/Resolved]
  - Nausea [Recovered/Resolved]
  - Vomiting [Recovered/Resolved]
  - Constipation [Unknown]
  - Dizziness [Recovered/Resolved]
  - Enteritis [Recovered/Resolved]
  - Anaemia [Unknown]
  - Gastric mucosa erythema [Unknown]
  - Erosive duodenitis [Unknown]
  - Rash [Unknown]
  - Diarrhoea [Unknown]
  - Influenza like illness [Unknown]
  - Haemoglobin decreased [Unknown]
  - Haematocrit decreased [Unknown]
  - Blood creatinine increased [Unknown]
